FAERS Safety Report 8275852-8 (Version None)
Quarter: 2012Q2

REPORT INFORMATION
  Report Type: 
  Country: None (occurrence: None)
  Receive Date: 20120410
  Receipt Date: 20120410
  Transmission Date: 20120825
  Serious: Yes (Other)
  Sender: FDA-Public Use
  Company Number: None

PATIENT

DRUGS (1)
  1. KANKA [Suspect]
     Indication: ANALGESIC THERAPY
     Dates: start: 20120309, end: 20120310

REACTIONS (1)
  - DRUG HYPERSENSITIVITY [None]
